FAERS Safety Report 7138023 (Version 8)
Quarter: 2014Q1

REPORT INFORMATION
  Report Type: Spontaneous
  Country: GB (occurrence: GB)
  Receive Date: 20091002
  Receipt Date: 20140114
  Transmission Date: 20141002
  Serious: Yes (Life-Threatening, Congenital Anomaly)
  Sender: FDA-Public Use
  Company Number: GB-JNJFOC-20090908765

PATIENT
  Age: 0 Day
  Sex: Female
  Weight: 2.2 kg

DRUGS (10)
  1. PREZISTA [Suspect]
     Indication: FOETAL EXPOSURE DURING PREGNANCY
     Route: 064
     Dates: start: 20081023, end: 20090221
  2. ETRAVIRINE [Suspect]
     Indication: FOETAL EXPOSURE DURING PREGNANCY
     Route: 064
     Dates: start: 20081023, end: 20090221
  3. RALTEGRAVIR [Suspect]
     Indication: FOETAL EXPOSURE DURING PREGNANCY
     Route: 064
     Dates: start: 20081023, end: 20090221
  4. RITONAVIR [Suspect]
     Indication: FOETAL EXPOSURE DURING PREGNANCY
     Route: 064
     Dates: start: 20060905
  5. RITONAVIR [Suspect]
     Indication: FOETAL EXPOSURE DURING PREGNANCY
     Route: 064
     Dates: start: 20081023, end: 20090221
  6. TIPRANAVIR [Suspect]
     Indication: FOETAL EXPOSURE DURING PREGNANCY
     Route: 064
     Dates: start: 20070605, end: 20081023
  7. TRUVADA [Suspect]
     Indication: FOETAL EXPOSURE DURING PREGNANCY
     Route: 064
     Dates: start: 20070605, end: 20081023
  8. AZIDOTHYMIDINE [Concomitant]
     Indication: EXPOSURE DURING PREGNANCY
     Route: 042
  9. NOVORAPID [Concomitant]
     Indication: FOETAL EXPOSURE DURING PREGNANCY
     Route: 064
  10. PREDNISOLONE [Concomitant]
     Indication: FOETAL EXPOSURE DURING PREGNANCY
     Route: 064

REACTIONS (6)
  - Cloacal exstrophy [Recovered/Resolved with Sequelae]
  - Meningomyelocele [Recovered/Resolved with Sequelae]
  - Premature baby [Not Recovered/Not Resolved]
  - Tethered cord syndrome [Recovered/Resolved with Sequelae]
  - Sepsis neonatal [Recovered/Resolved]
  - Caudal regression syndrome [Recovered/Resolved with Sequelae]
